FAERS Safety Report 8207676-1 (Version None)
Quarter: 2012Q1

REPORT INFORMATION
  Report Type: 
  Country: None (occurrence: None)
  Receive Date: 20120314
  Receipt Date: 20120312
  Transmission Date: 20120608
  Serious: Yes (Hospitalization)
  Sender: FDA-Public Use
  Company Number: US-PFIZER INC-2012065413

PATIENT
  Sex: Female
  Weight: 86.621 kg

DRUGS (4)
  1. PROTONIX [Suspect]
     Indication: BARRETT'S OESOPHAGUS
     Dosage: 40 MG, 2X/DAY
     Dates: start: 20110101
  2. LEXAPRO [Concomitant]
     Indication: DEPRESSION
     Dosage: UNK
  3. KLONOPIN [Concomitant]
     Dosage: UNK
  4. PROTONIX [Suspect]
     Indication: GASTROOESOPHAGEAL REFLUX DISEASE

REACTIONS (7)
  - VOMITING [None]
  - MALAISE [None]
  - INTESTINAL OBSTRUCTION [None]
  - TREMOR [None]
  - ABDOMINAL PAIN UPPER [None]
  - RETCHING [None]
  - BACK PAIN [None]
